FAERS Safety Report 8486926-0 (Version None)
Quarter: 2012Q3

REPORT INFORMATION
  Report Type: 
  Country: None (occurrence: None)
  Receive Date: 20120704
  Receipt Date: 20120625
  Transmission Date: 20120928
  Serious: Yes (Death)
  Sender: FDA-Public Use
  Company Number: FR-BRISTOL-MYERS SQUIBB COMPANY-16588949

PATIENT
  Age: 76 Year
  Sex: Female

DRUGS (4)
  1. PLAVIX [Concomitant]
  2. ORENCIA [Suspect]
     Indication: RHEUMATOID ARTHRITIS
     Dosage: AT LEAST 1 YEAR 400MG:20OCT09
     Route: 042
     Dates: start: 20091020, end: 20120330
  3. PROCORALAN [Concomitant]
  4. KARDEGIC [Concomitant]

REACTIONS (5)
  - CEREBRAL HAEMATOMA [None]
  - HAEMORRHAGIC CEREBRAL INFARCTION [None]
  - ISCHAEMIC STROKE [None]
  - CARDIAC ARREST [None]
  - RESPIRATORY ARREST [None]
